FAERS Safety Report 7308868-6 (Version None)
Quarter: 2011Q1

REPORT INFORMATION
  Report Type: 
  Country: None (occurrence: None)
  Receive Date: 20110210
  Receipt Date: 20110120
  Transmission Date: 20110831
  Serious: Yes (Death)
  Sender: FDA-Public Use
  Company Number: AE11-007-2

PATIENT
  Age: 45 Year
  Sex: Female

DRUGS (3)
  1. LORCET-HD [Suspect]
  2. ETHANOL [Suspect]
  3. ACETAMINOPHEN [Suspect]

REACTIONS (1)
  - DRUG ABUSE [None]
